FAERS Safety Report 10256310 (Version 4)
Quarter: 2014Q3

REPORT INFORMATION
  Report Type: Spontaneous
  Country: GB (occurrence: GB)
  Receive Date: 20140624
  Receipt Date: 20140822
  Transmission Date: 20150326
  Serious: Yes (Hospitalization, Other)
  Sender: FDA-Public Use
  Company Number: GB-ACTAVISPR-2014-13849

PATIENT
  Age: 58 Year
  Sex: Female

DRUGS (8)
  1. VALSARTAN SANDOZ [Suspect]
     Active Substance: VALSARTAN
     Indication: HYPERTENSION
     Dosage: 320 MG, UNK
     Route: 065
     Dates: end: 20140207
  2. RAMIPRIL SANDOZ [Suspect]
     Active Substance: RAMIPRIL
     Indication: HYPERTENSION
     Dosage: 10 MG, UNK
     Route: 065
  3. BISOPROLOL TEVA [Concomitant]
     Indication: PRODUCT USED FOR UNKNOWN INDICATION
     Dosage: 2.5 MG, UNK
     Route: 065
  4. VALSARTAN (UNKNOWN) [Suspect]
     Active Substance: VALSARTAN
     Dosage: UNK (TABLETS)
     Route: 048
  5. IRBESARTAN ACTAVIS [Suspect]
     Active Substance: IRBESARTAN
     Indication: HYPERTENSION
     Dosage: 150 MG, UNK
     Route: 065
  6. RAMIPRIL (UNKNOWN) [Suspect]
     Active Substance: RAMIPRIL
     Indication: HYPERTENSION
     Dosage: 2.5 MG, UNK (CAPSULES)
     Route: 048
  7. VALSARTAN (UNKNOWN) [Suspect]
     Active Substance: VALSARTAN
     Indication: PRODUCT USED FOR UNKNOWN INDICATION
     Dosage: 320 MG, UNK (TABLETS)
     Route: 048
  8. VALSARTAN (UNKNOWN) [Suspect]
     Active Substance: VALSARTAN
     Dosage: 80 MG, UNK (CAPSULES)
     Route: 048
     Dates: start: 20120403, end: 20120430

REACTIONS (21)
  - Ear discomfort [Unknown]
  - Weight increased [Unknown]
  - Malaise [Unknown]
  - Abdominal discomfort [Unknown]
  - Gastrointestinal oedema [Unknown]
  - Nasal dryness [Unknown]
  - White blood cell count increased [Unknown]
  - Restlessness [Unknown]
  - Muscle strain [Unknown]
  - Cell marker increased [Unknown]
  - Troponin increased [Unknown]
  - Swollen tongue [Unknown]
  - Feeling abnormal [Unknown]
  - Alopecia [Unknown]
  - Tenderness [Unknown]
  - Chest pain [Unknown]
  - Hepatic enzyme increased [Unknown]
  - Drug ineffective [Unknown]
  - Fear [Unknown]
  - Tinnitus [Unknown]
  - Oedema mouth [Unknown]
